FAERS Safety Report 6739476-3 (Version None)
Quarter: 2010Q2

REPORT INFORMATION
  Report Type: 
  Country: None (occurrence: None)
  Receive Date: 20100521
  Receipt Date: 20100427
  Transmission Date: 20101027
  Serious: Yes (Other)
  Sender: FDA-Public Use
  Company Number: AUR-APL-2010-01080

PATIENT
  Age: 54 Year
  Sex: Male
  Weight: 98.1 kg

DRUGS (5)
  1. HYDROCHLOROTHIAZIDE [Suspect]
     Dosage: 25MG - DAILY
  2. LISINOPRIL [Suspect]
     Dosage: 10MG - DAILY
  3. SUNITINIB; SORAFENIB; PLACEBO [Suspect]
     Indication: RENAL CELL CARCINOMA
     Dosage: ORAL
     Route: 048
     Dates: start: 20090708
  4. TOPROL-XL [Suspect]
     Dosage: 22MG - DAILY
  5. TRAZODONE HCL [Suspect]
     Dosage: 100MG - DAILY

REACTIONS (6)
  - ABDOMINAL DISCOMFORT [None]
  - CONTUSION [None]
  - DIARRHOEA [None]
  - LOSS OF CONSCIOUSNESS [None]
  - NAUSEA [None]
  - SYNCOPE [None]
